FAERS Safety Report 15957945 (Version 3)
Quarter: 2019Q1

REPORT INFORMATION
  Report Type: Report from Study
  Country: US (occurrence: US)
  Receive Date: 20190213
  Receipt Date: 20190318
  Transmission Date: 20190417
  Serious: Yes (Hospitalization)
  Sender: FDA-Public Use
  Company Number: US-ACTELION-A-NJ2018-181096

PATIENT
  Age: 87 Year
  Sex: Female

DRUGS (15)
  1. TUMS [Concomitant]
     Active Substance: CALCIUM CARBONATE
  2. DILTIAZEM. [Concomitant]
     Active Substance: DILTIAZEM
  3. POTASSIUM [Concomitant]
     Active Substance: POTASSIUM
  4. ALIGN [Concomitant]
     Active Substance: BIFIDOBACTERIUM LONGUM SUBSP. INFANTIS
  5. CARVEDILOL. [Concomitant]
     Active Substance: CARVEDILOL
  6. COLACE [Concomitant]
     Active Substance: DOCUSATE SODIUM
  7. SIMVASTATIN. [Concomitant]
     Active Substance: SIMVASTATIN
  8. ASPIRIN. [Concomitant]
     Active Substance: ASPIRIN
  9. FERROUS SULFATE. [Concomitant]
     Active Substance: FERROUS SULFATE
  10. OXYGEN. [Concomitant]
     Active Substance: OXYGEN
  11. OPSUMIT [Suspect]
     Active Substance: MACITENTAN
     Indication: PULMONARY ARTERIAL HYPERTENSION
     Dosage: 10 MG, QD
     Route: 048
     Dates: start: 20161007
  12. PRILOSEC [Concomitant]
     Active Substance: OMEPRAZOLE MAGNESIUM
  13. ZANTAC [Concomitant]
     Active Substance: RANITIDINE HYDROCHLORIDE
  14. RECLAST [Concomitant]
     Active Substance: ZOLEDRONIC ACID
  15. VITAMIN D3 [Concomitant]
     Active Substance: CHOLECALCIFEROL

REACTIONS (4)
  - Surgery [Not Recovered/Not Resolved]
  - Pulmonary arterial hypertension [Recovering/Resolving]
  - Abdominal discomfort [Not Recovered/Not Resolved]
  - Therapeutic procedure [Not Recovered/Not Resolved]

NARRATIVE: CASE EVENT DATE: 201810
